FAERS Safety Report 7811439-6 (Version None)
Quarter: 2011Q4

REPORT INFORMATION
  Report Type: 
  Country: None (occurrence: None)
  Receive Date: 20111013
  Receipt Date: 20111011
  Transmission Date: 20120403
  Serious: Yes (Death, Other)
  Sender: FDA-Public Use
  Company Number: US-PFIZER INC-2011225291

PATIENT
  Sex: Male

DRUGS (1)
  1. VFEND [Suspect]
     Indication: ASPERGILLOSIS
     Dosage: 200 MG, EVERY 12 HOURS
     Dates: start: 20110706, end: 20110920

REACTIONS (4)
  - BLOOD PRESSURE DECREASED [None]
  - PNEUMONIA [None]
  - DEATH [None]
  - CARDIAC DISORDER [None]
